FAERS Safety Report 19179852 (Version 2)
Quarter: 2022Q3

REPORT INFORMATION
  Report Type: Report from Study
  Country: BR (occurrence: BR)
  Receive Date: 20210426
  Receipt Date: 20220930
  Transmission Date: 20221027
  Serious: Yes (Hospitalization)
  Sender: FDA-Public Use
  Company Number: BR-JNJFOC-20210310065

PATIENT
  Age: 58 Year
  Sex: Male
  Weight: 74 kg

DRUGS (3)
  1. SIMPONI [Suspect]
     Active Substance: GOLIMUMAB
     Indication: Ankylosing spondylitis
     Route: 058
     Dates: start: 20190930, end: 20210210
  2. CLONAZEPAM [Concomitant]
     Active Substance: CLONAZEPAM
  3. PAROXETINE [Concomitant]
     Active Substance: PAROXETINE

REACTIONS (5)
  - COVID-19 [Not Recovered/Not Resolved]
  - Fungal skin infection [Not Recovered/Not Resolved]
  - Insomnia [Unknown]
  - Phobia [Unknown]
  - Skin papilloma [Unknown]

NARRATIVE: CASE EVENT DATE: 20210210
